FAERS Safety Report 8181896-7 (Version None)
Quarter: 2012Q1

REPORT INFORMATION
  Report Type: 
  Country: None (occurrence: None)
  Receive Date: 20120302
  Receipt Date: 20120227
  Transmission Date: 20120608
  Serious: Yes (Hospitalization, Other)
  Sender: FDA-Public Use
  Company Number: GB-FRI-1000028548

PATIENT
  Sex: Female

DRUGS (1)
  1. DINOPROSTONE [Suspect]
     Indication: LABOUR INDUCTION
     Route: 067

REACTIONS (3)
  - BRADYCARDIA [None]
  - BROAD LIGAMENT TEAR [None]
  - DEVICE DISLOCATION [None]
